FAERS Safety Report 4393090-6 (Version None)
Quarter: 2004Q3

REPORT INFORMATION
  Report Type: 
  Country: None (occurrence: None)
  Receive Date: 20040708
  Receipt Date: 20030513
  Transmission Date: 20050211
  Serious: Yes (Congenital Anomaly)
  Sender: FDA-Public Use
  Company Number: PHBS2003NO04888

PATIENT
  Age: 1 Year
  Sex: Female

DRUGS (1)
  1. TEGRETOL [Suspect]
     Route: 064

REACTIONS (5)
  - CONGENITAL CYSTIC KIDNEY DISEASE [None]
  - CONGENITAL OESOPHAGEAL ANOMALY [None]
  - DRUG EXPOSURE DURING PREGNANCY [None]
  - OESOPHAGEAL FISTULA REPAIR [None]
  - TRACHEO-OESOPHAGEAL FISTULA [None]
